FAERS Safety Report 12408375 (Version 1)
Quarter: 2016Q2

REPORT INFORMATION
  Report Type: Spontaneous
  Country: US (occurrence: US)
  Receive Date: 20160526
  Receipt Date: 20160526
  Transmission Date: 20160815
  Serious: No
  Sender: FDA-Public Use
  Company Number: US-BAYER-2016-101442

PATIENT
  Age: 66 Year
  Sex: Female
  Weight: 72.56 kg

DRUGS (3)
  1. ALEVE [Suspect]
     Active Substance: NAPROXEN SODIUM
     Indication: ARTHRITIS
     Dosage: SOMETIMES CONSUMER TAKE 2 TABLETS IN THE MORNING AND 2 IN THE EVENING
     Route: 048
     Dates: start: 2001
  2. BAYER LOW DOSE [Concomitant]
     Active Substance: ASPIRIN
  3. ALEVE [Suspect]
     Active Substance: NAPROXEN SODIUM
     Indication: ARTHRITIS
     Dosage: 2 DF, EVERY MORNING WITH AT LEAST 8 OUNCES OF COFFEE
     Route: 048
     Dates: start: 2001

REACTIONS (2)
  - Product use issue [None]
  - Product use issue [Not Recovered/Not Resolved]

NARRATIVE: CASE EVENT DATE: 2001
